FAERS Safety Report 10024571 (Version 1)
Quarter: 2014Q1

REPORT INFORMATION
  Report Type: Report from Study
  Country: US (occurrence: US)
  Receive Date: 20140320
  Receipt Date: 20140320
  Transmission Date: 20141002
  Serious: Yes (Other)
  Sender: FDA-Public Use
  Company Number: PHEH2014US005444

PATIENT
  Sex: Male

DRUGS (2)
  1. DIOVAN [Suspect]
     Dosage: UNK (160 MG), UNK
  2. DIOVAN [Suspect]
     Dosage: UNK (160 MG), UNK
     Route: 048

REACTIONS (1)
  - Diabetes mellitus [Unknown]
